FAERS Safety Report 7425304-X (Version None)
Quarter: 2011Q2

REPORT INFORMATION
  Report Type: 
  Country: None (occurrence: None)
  Receive Date: 20110420
  Receipt Date: 20101118
  Transmission Date: 20111010
  Serious: Yes (Hospitalization, Disabling)
  Sender: FDA-Public Use
  Company Number: US-BAYER-201020566NA

PATIENT
  Age: 31 Year
  Sex: Female
  Weight: 93 kg

DRUGS (10)
  1. YAZ [Suspect]
     Indication: CONTRACEPTION
     Route: 048
     Dates: start: 20071101, end: 20080423
  2. METRONIDAZOLE [Concomitant]
     Dosage: UNK
     Dates: start: 20051201
  3. MELOXICAM [Concomitant]
     Dosage: UNK
     Dates: start: 20071201
  4. TRIAMTERENE AND HYDROCHLOROTHIAZID [Concomitant]
     Indication: BLOOD PRESSURE ABNORMAL
     Dosage: UNK
     Dates: start: 20061113
  5. FERROUS SULFATE TAB [Concomitant]
  6. IBUPROFEN [Concomitant]
     Dosage: UNK UNK, PRN
  7. NAPROXEN (ALEVE) [Concomitant]
     Dosage: UNK UNK, PRN
  8. METRONIDAZOLE [Concomitant]
     Dosage: UNK
     Dates: start: 20070101
  9. CEPHALEXIN [Concomitant]
     Dosage: UNK
     Dates: start: 20071201
  10. DOSTINEX [Concomitant]
     Indication: HYPERPROLACTINAEMIA
     Dosage: 0.5 MG, BIW
     Dates: start: 20040101

REACTIONS (6)
  - DYSPNOEA [None]
  - PAIN IN EXTREMITY [None]
  - DEEP VEIN THROMBOSIS [None]
  - PAIN [None]
  - THROMBOSIS [None]
  - OEDEMA PERIPHERAL [None]
